FAERS Safety Report 7780120-4 (Version None)
Quarter: 2011Q3

REPORT INFORMATION
  Report Type: 
  Country: None (occurrence: None)
  Receive Date: 20110927
  Receipt Date: 20110430
  Transmission Date: 20111222
  Serious: No
  Sender: FDA-Public Use
  Company Number: US-ASTRAZENECA-2011SE26090

PATIENT
  Age: 15 Year
  Sex: Female

DRUGS (2)
  1. TOPAMAX [Concomitant]
  2. SEROQUEL [Suspect]
     Indication: ATTENTION DEFICIT/HYPERACTIVITY DISORDER
     Route: 048
     Dates: start: 20101101, end: 20110428

REACTIONS (2)
  - OFF LABEL USE [None]
  - FORMICATION [None]
